FAERS Safety Report 6975038 (Version 4)
Quarter: 2013Q1

REPORT INFORMATION
  Report Type: Spontaneous
  Country: US (occurrence: US)
  Receive Date: 20090422
  Receipt Date: 20130311
  Transmission Date: 20140127
  Serious: Yes (Hospitalization, Other)
  Sender: FDA-Public Use
  Company Number: US-BIOGENIDEC-2009BI011573

PATIENT
  Age: 49 Year
  Sex: Female
  Weight: 127 kg

DRUGS (1)
  1. AVONEX [Suspect]
     Indication: MULTIPLE SCLEROSIS
     Route: 030
     Dates: start: 19991115

REACTIONS (6)
  - Endometrial adenocarcinoma [Recovered/Resolved]
  - Diabetes mellitus [Not Recovered/Not Resolved]
  - Dependence [Not Recovered/Not Resolved]
  - Multiple sclerosis [Not Recovered/Not Resolved]
  - Weight increased [Unknown]
  - Muscular weakness [Unknown]
